FAERS Safety Report 4372713-1 (Version None)
Quarter: 2004Q2

REPORT INFORMATION
  Report Type: 
  Country: None (occurrence: None)
  Receive Date: 20040526
  Receipt Date: 20040517
  Transmission Date: 20050107
  Serious: Yes (Life-Threatening)
  Sender: FDA-Public Use
  Company Number: DSA_60416_2004

PATIENT
  Age: 43 Year
  Sex: Female
  Weight: 47.6277 kg

DRUGS (4)
  1. MIGRANAL [Suspect]
     Indication: MIGRAINE
     Dates: start: 20040430, end: 20040430
  2. EFFEXOR [Concomitant]
  3. ZONEGRAN [Concomitant]
  4. MAXALT [Concomitant]

REACTIONS (1)
  - HYPERSENSITIVITY [None]
